FAERS Safety Report 11811413 (Version 1)
Quarter: 2015Q4

REPORT INFORMATION
  Report Type: Spontaneous
  Country: US (occurrence: US)
  Receive Date: 20151208
  Receipt Date: 20151208
  Transmission Date: 20160305
  Serious: No
  Sender: FDA-Public Use
  Company Number: US-PFIZER INC-2015414350

PATIENT
  Age: 57 Year
  Sex: Female
  Weight: 46.71 kg

DRUGS (9)
  1. TEGRETOL [Suspect]
     Active Substance: CARBAMAZEPINE
     Indication: SEIZURE
     Dosage: 200 MG, UNK, (ONE TABLET EVERY FOUR HOURS IN A DAY)
     Route: 048
     Dates: start: 1979
  2. ASPIRIN. [Concomitant]
     Active Substance: ASPIRIN
     Dosage: UNK
  3. DILANTIN [Suspect]
     Active Substance: PHENYTOIN
     Dosage: UNK UNK, 3X/DAY
     Route: 065
  4. MOGADON [Suspect]
     Active Substance: NITRAZEPAM
     Indication: SEIZURE
     Dosage: 5 MG, 4X/DAY
     Route: 048
     Dates: start: 1986
  5. PREDNISONE. [Concomitant]
     Active Substance: PREDNISONE
     Dosage: UNK
  6. ALTACE [Suspect]
     Active Substance: RAMIPRIL
     Dosage: UNK
     Route: 065
  7. DILANTIN [Suspect]
     Active Substance: PHENYTOIN
     Indication: SEIZURE
     Dosage: UNK UNK, 2X/DAY (ONE CAPSULE IN THE MORNING AND TWO IN THE NIGHT)
     Route: 065
     Dates: start: 1980
  8. IRON [Concomitant]
     Active Substance: IRON
     Dosage: UNK
  9. CENTRUM [Concomitant]
     Active Substance: VITAMINS
     Dosage: UNK

REACTIONS (2)
  - Off label use [Unknown]
  - Drug hypersensitivity [Unknown]

NARRATIVE: CASE EVENT DATE: 1986
